FAERS Safety Report 23369001 (Version 1)
Quarter: 2024Q1

REPORT INFORMATION
  Report Type: Report from Study
  Country: CO (occurrence: CO)
  Receive Date: 20240105
  Receipt Date: 20240105
  Transmission Date: 20240410
  Serious: Yes (Other)
  Sender: FDA-Public Use
  Company Number: CO-UCBSA-2024000424

PATIENT
  Age: 21 Year
  Sex: Female

DRUGS (1)
  1. BRIVARACETAM [Suspect]
     Active Substance: BRIVARACETAM
     Indication: Epilepsy
     Dosage: UNK MILLIGRAM
     Route: 048

REACTIONS (3)
  - Seizure [Unknown]
  - Insurance issue [Unknown]
  - Therapy interrupted [Unknown]
